FAERS Safety Report 4420264-8 (Version None)
Quarter: 2004Q3

REPORT INFORMATION
  Report Type: 
  Country: None (occurrence: None)
  Receive Date: 20040809
  Receipt Date: 20040325
  Transmission Date: 20050211
  Serious: No
  Sender: FDA-Public Use
  Company Number: US-GLAXOSMITHKLINE-A0504587A

PATIENT
  Sex: Male

DRUGS (1)
  1. PAROXETINE HCL [Suspect]
     Indication: FIBROMYALGIA
     Dosage: 20MG PER DAY
     Route: 048
     Dates: start: 20040301

REACTIONS (1)
  - DRUG INEFFECTIVE [None]
